FAERS Safety Report 9415242 (Version 1)
Quarter: 2013Q3

REPORT INFORMATION
  Report Type: Spontaneous
  Country: US (occurrence: US)
  Receive Date: 20130723
  Receipt Date: 20130723
  Transmission Date: 20140515
  Serious: No
  Sender: FDA-Public Use
  Company Number: US-BAYER-2013-088452

PATIENT
  Age: 62 Year
  Sex: Female
  Weight: 95 kg

DRUGS (11)
  1. BETASERON [Suspect]
     Dosage: 1 ML, QOD
     Route: 058
  2. COZAAR [Concomitant]
     Dosage: 100 MG, UNK
  3. NORVASC [Concomitant]
     Dosage: 10 MG, UNK
  4. CARDURA [Concomitant]
     Dosage: 1 MG, UNK
  5. PROTONIX [Concomitant]
     Dosage: 20 MG, UNK
  6. POTASSIUM [Concomitant]
     Dosage: 75 MG, UNK
  7. WELCHOL [Concomitant]
     Dosage: 625 MG, UNK
  8. VITAMIN D [Concomitant]
     Dosage: 1000 U, UNK
  9. BIOTIN [Concomitant]
     Dosage: 5000 UNK, UNK
  10. GARLIC [Concomitant]
     Dosage: 1500 UNK, UNK
  11. FISH OIL [Concomitant]

REACTIONS (3)
  - Injection site irritation [Recovering/Resolving]
  - Injection site pruritus [Recovering/Resolving]
  - Injection site dryness [Recovering/Resolving]
